FAERS Safety Report 6015175-0 (Version None)
Quarter: 2008Q4

REPORT INFORMATION
  Report Type: 
  Country: None (occurrence: None)
  Receive Date: 20081218
  Receipt Date: 20081205
  Transmission Date: 20090506
  Serious: Yes (Congenital Anomaly)
  Sender: FDA-Public Use
  Company Number: WAES 0812USA02276

PATIENT
  Sex: Female

DRUGS (1)
  1. ZOCOR [Suspect]

REACTIONS (8)
  - ANAL ATRESIA [None]
  - CAUDAL REGRESSION SYNDROME [None]
  - DRUG EXPOSURE DURING PREGNANCY [None]
  - FEMALE GENITAL TRACT FISTULA [None]
  - MATERNAL DRUGS AFFECTING FOETUS [None]
  - PREGNANCY [None]
  - RIGHT AORTIC ARCH [None]
  - VENTRICULAR SEPTAL DEFECT [None]
